FAERS Safety Report 4465871-1 (Version None)
Quarter: 2004Q4

REPORT INFORMATION
  Report Type: 
  Country: None (occurrence: None)
  Receive Date: 20041001
  Receipt Date: 20041001
  Transmission Date: 20050328
  Serious: No
  Sender: FDA-Public Use
  Company Number: None

PATIENT
  Sex: Female
  Weight: 146.5118 kg

DRUGS (2)
  1. VIOXX [Suspect]
     Indication: JOINT INJURY
     Dosage: .5 TABLET ONCE DAILY ORAL
     Route: 048
     Dates: start: 20030401, end: 20040930
  2. VIOXX [Suspect]
     Indication: OSTEOARTHRITIS
     Dosage: .5 TABLET ONCE DAILY ORAL
     Route: 048
     Dates: start: 20030401, end: 20040930

REACTIONS (2)
  - BLOOD CHOLESTEROL ABNORMAL [None]
  - BLOOD TRIGLYCERIDES INCREASED [None]
